FAERS Safety Report 7430162-3 (Version None)
Quarter: 2011Q2

REPORT INFORMATION
  Report Type: 
  Country: None (occurrence: None)
  Receive Date: 20110421
  Receipt Date: 20110413
  Transmission Date: 20111010
  Serious: Yes (Other)
  Sender: FDA-Public Use
  Company Number: US-CELGENEUS-163-C5013-11030273

PATIENT
  Sex: Male
  Weight: 83.082 kg

DRUGS (22)
  1. MULTI-VITAMINS [Concomitant]
     Dosage: 1 TABLET
     Route: 048
  2. ALLOPURINOL [Concomitant]
     Dosage: 100 MILLIGRAM
     Route: 048
  3. PRILOSEC [Concomitant]
     Dosage: 20 MILLIGRAM
     Route: 048
  4. DETROL LA [Concomitant]
     Dosage: 4 MILLIGRAM
     Route: 065
  5. TRIAMCINOLONE ACETONIDE [Concomitant]
     Route: 061
  6. DEXAMETHASONE [Suspect]
     Indication: MULTIPLE MYELOMA
     Dosage: 20 MILLIGRAM
     Route: 048
     Dates: start: 20100908
  7. AMBIEN [Concomitant]
     Dosage: 5-10MG
     Route: 048
  8. EFUDEX [Concomitant]
     Route: 061
  9. SULAR [Concomitant]
     Dosage: 10 MILLIGRAM
     Route: 048
  10. LENALIDOMIDE [Suspect]
     Dosage: 25 MILLIGRAM
     Route: 048
     Dates: start: 20110223
  11. BISOPROLOL FUMARATE [Concomitant]
     Dosage: 5 MILLIGRAM
     Route: 048
  12. COLCHICINE [Concomitant]
     Dosage: .6 MILLIGRAM
     Route: 048
  13. FOLIC ACID [Concomitant]
     Dosage: 800 MICROGRAM
     Route: 048
  14. LOVASTATIN [Concomitant]
     Dosage: 40 MILLIGRAM
     Route: 048
  15. DEXAMETHASONE [Suspect]
     Dosage: 20 MILLIGRAM
     Route: 048
     Dates: start: 20110223
  16. CYANOCOBALAMIN [Concomitant]
     Dosage: 1 TABLET
     Route: 048
  17. ASPIRIN [Concomitant]
     Dosage: 325 MILLIGRAM
     Route: 048
  18. LORAZEPAM [Concomitant]
     Dosage: 1-2MG
     Route: 048
  19. LENALIDOMIDE [Suspect]
     Indication: MULTIPLE MYELOMA
     Dosage: 25 MILLIGRAM
     Route: 048
     Dates: start: 20100908
  20. CLOBETASOL PROPIONATE [Concomitant]
     Route: 061
  21. EMLA [Concomitant]
     Route: 061
  22. LOVAZA [Concomitant]
     Dosage: 1200 MILLIGRAM
     Route: 048

REACTIONS (1)
  - LENTIGO MALIGNA STAGE UNSPECIFIED [None]
